FAERS Safety Report 18059144 (Version 9)
Quarter: 2021Q2

REPORT INFORMATION
  Report Type: Report from Study
  Country: CL (occurrence: CL)
  Receive Date: 20200723
  Receipt Date: 20210615
  Transmission Date: 20210717
  Serious: Yes (Other)
  Sender: FDA-Public Use
  Company Number: NVSC2020CL092951

PATIENT
  Sex: Female

DRUGS (1)
  1. COSENTYX [Suspect]
     Active Substance: SECUKINUMAB
     Indication: PSORIATIC ARTHROPATHY
     Dosage: 150 MG, QMO
     Route: 058
     Dates: start: 201808, end: 20200227

REACTIONS (22)
  - Psoriatic arthropathy [Not Recovered/Not Resolved]
  - Nuchal rigidity [Recovering/Resolving]
  - Skin discolouration [Recovering/Resolving]
  - Hypertension [Not Recovered/Not Resolved]
  - Musculoskeletal discomfort [Recovering/Resolving]
  - Blood glucose increased [Recovering/Resolving]
  - Product dose omission issue [Unknown]
  - Inappropriate schedule of product administration [Unknown]
  - Diabetes mellitus [Recovering/Resolving]
  - Pain [Recovering/Resolving]
  - Nervous system disorder [Not Recovered/Not Resolved]
  - Thyroid function test abnormal [Not Recovered/Not Resolved]
  - Anxiety [Recovering/Resolving]
  - Fatigue [Recovering/Resolving]
  - Psoriasis [Recovering/Resolving]
  - Scab [Unknown]
  - Peripheral swelling [Not Recovered/Not Resolved]
  - Maternal exposure during pregnancy [Unknown]
  - Myalgia [Unknown]
  - Finger deformity [Unknown]
  - Muscular weakness [Unknown]
  - Pain in extremity [Not Recovered/Not Resolved]

NARRATIVE: CASE EVENT DATE: 2020
